FAERS Safety Report 21083911 (Version 1)
Quarter: 2022Q3

REPORT INFORMATION
  Report Type: Spontaneous
  Country: US (occurrence: US)
  Receive Date: 20220714
  Receipt Date: 20220714
  Transmission Date: 20221027
  Serious: No
  Sender: FDA-Public Use
  Company Number: US-JAZZ-2022-US-011827

PATIENT
  Sex: Female

DRUGS (1)
  1. EPIDIOLEX [Suspect]
     Active Substance: CANNABIDIOL
     Indication: Seizure
     Dosage: GIVE 2.5 ML BY MOUTH 2 TIMES A DAY FOR 7 DAYS, THEN 5 ML BY MOUTH 2 TIMES A DAY THEREAFTER
     Route: 048
     Dates: start: 202203

REACTIONS (1)
  - Diarrhoea [Unknown]
